FAERS Safety Report 15266409 (Version 1)
Quarter: 2018Q4

REPORT INFORMATION
  Report Type: Other
  Country: AU (occurrence: AU)
  Receive Date: 20180810
  Receipt Date: 20180810
  Transmission Date: 20190204
  Serious: Yes (Hospitalization)
  Sender: FDA-Public Use
  Company Number: AU-WELLSTAT THERAPEUTICS CORPORATION-2053559

PATIENT
  Age: 43 Year
  Sex: Male
  Weight: 111.9 kg

DRUGS (2)
  1. CAPOX (CAPECITABINE, OXALIPLATIN) [Suspect]
     Active Substance: CAPECITABINE\OXALIPLATIN
     Route: 065
     Dates: start: 20180704, end: 20180716
  2. VISTOGARD [Suspect]
     Active Substance: URIDINE TRIACETATE
     Indication: CHEMOTHERAPY TOXICITY ATTENUATION
     Route: 048
     Dates: start: 20180718, end: 20180723

REACTIONS (2)
  - Ileus [Recovered/Resolved]
  - Vomiting [Unknown]

NARRATIVE: CASE EVENT DATE: 20180725
